FAERS Safety Report 9535584 (Version 3)
Quarter: 2014Q1

REPORT INFORMATION
  Report Type: Spontaneous
  Country: AR (occurrence: AR)
  Receive Date: 20130919
  Receipt Date: 20140120
  Transmission Date: 20141002
  Serious: Yes (Other)
  Sender: FDA-Public Use
  Company Number: AR-AMGEN-ARGSP2013065256

PATIENT
  Age: 57 Year
  Sex: Female

DRUGS (6)
  1. ENBREL [Suspect]
     Indication: RHEUMATOID ARTHRITIS
     Dosage: 50 MG, WEEKLY
     Route: 065
     Dates: start: 20110801
  2. ENALAPRIL [Concomitant]
     Dosage: UNK
  3. MODURETIC [Concomitant]
     Dosage: UNK
  4. OMEPRAZOLE [Concomitant]
     Dosage: UNK
  5. CALCIUM [Concomitant]
     Dosage: UNK
  6. ANTIBIOTICS [Concomitant]
     Dosage: UNK

REACTIONS (4)
  - Thyroid neoplasm [Recovered/Resolved]
  - Blood pressure decreased [Recovered/Resolved]
  - Hiatus hernia [Not Recovered/Not Resolved]
  - Diverticulum [Not Recovered/Not Resolved]
